FAERS Safety Report 6364495-9 (Version None)
Quarter: 2009Q3

REPORT INFORMATION
  Report Type: 
  Country: None (occurrence: None)
  Receive Date: 20090919
  Receipt Date: 20090722
  Transmission Date: 20100115
  Serious: No
  Sender: FDA-Public Use
  Company Number: US-ABBOTT-09P-163-0587316-00

PATIENT
  Sex: Female

DRUGS (1)
  1. HUMIRA [Suspect]
     Indication: ACCIDENTAL EXPOSURE
     Dates: start: 20090721, end: 20090721

REACTIONS (1)
  - ACCIDENTAL NEEDLE STICK [None]
